FAERS Safety Report 23377096 (Version 1)
Quarter: 2024Q1

REPORT INFORMATION
  Report Type: Spontaneous
  Country: US (occurrence: US)
  Receive Date: 20240108
  Receipt Date: 20240108
  Transmission Date: 20240410
  Serious: No
  Sender: FDA-Public Use
  Company Number: US-SANOFI-01891687

PATIENT
  Age: 82 Year
  Sex: Female

DRUGS (1)
  1. LANTUS SOLOSTAR [Suspect]
     Active Substance: INSULIN GLARGINE
     Indication: Type 2 diabetes mellitus
     Dosage: 66 IU, QD
     Route: 065
     Dates: start: 2018

REACTIONS (3)
  - Pain [Unknown]
  - Feeling abnormal [Unknown]
  - Muscle injury [Unknown]
